FAERS Safety Report 4401865-X (Version None)
Quarter: 2004Q3

REPORT INFORMATION
  Report Type: 
  Country: None (occurrence: None)
  Receive Date: 20040714
  Receipt Date: 20040623
  Transmission Date: 20050211
  Serious: Yes (Hospitalization)
  Sender: FDA-Public Use
  Company Number: USA040463746

PATIENT
  Age: 48 Year
  Sex: Male
  Weight: 84 kg

DRUGS (7)
  1. STRATTERA [Suspect]
     Indication: ATTENTION DEFICIT/HYPERACTIVITY DISORDER
     Dosage: 80 MG/1 DAY
     Dates: start: 20040217, end: 20040401
  2. MULTIVITAMIN [Concomitant]
  3. PERCOCET [Concomitant]
  4. VALIUM [Concomitant]
  5. SOMA [Concomitant]
  6. IBUPROFEN [Concomitant]
  7. CRESTOR (ROSUVASTATIN CALCIUM) [Concomitant]

REACTIONS (5)
  - ANXIETY [None]
  - DRY MOUTH [None]
  - NEPHROLITHIASIS [None]
  - PARAESTHESIA [None]
  - PSYCHOMOTOR HYPERACTIVITY [None]
